FAERS Safety Report 8077410-7 (Version None)
Quarter: 2012Q1

REPORT INFORMATION
  Report Type: 
  Country: None (occurrence: None)
  Receive Date: 20120127
  Receipt Date: 20120125
  Transmission Date: 20120608
  Serious: Yes (Disabling)
  Sender: FDA-Public Use
  Company Number: PHHY2011IT112716

PATIENT
  Sex: Male

DRUGS (7)
  1. ZOMETA [Suspect]
     Indication: METASTASES TO BONE
     Dosage: UNK UKN, UNK
     Route: 042
     Dates: start: 20051201, end: 20061201
  2. LEVOFLOXACIN [Concomitant]
  3. VINORELBINE [Concomitant]
  4. TAMSULOSIN HYDROCHLORIDE [Concomitant]
  5. PREDNISONE TAB [Concomitant]
  6. LASIX [Concomitant]
  7. RADIOTHERAPY [Concomitant]

REACTIONS (1)
  - OSTEONECROSIS OF JAW [None]
